FAERS Safety Report 12656465 (Version 2)
Quarter: 2016Q4

REPORT INFORMATION
  Report Type: Spontaneous
  Country: FI (occurrence: FI)
  Receive Date: 20160816
  Receipt Date: 20161025
  Transmission Date: 20170207
  Serious: Yes (Hospitalization)
  Sender: FDA-Public Use
  Company Number: FI-JNJFOC-20160806823

PATIENT
  Age: 69 Year
  Sex: Female

DRUGS (9)
  1. BUVENTOL [Concomitant]
     Indication: ASTHMA
     Dosage: 200 MCG/DAY INHALATION POWDER 1 DOSE (MAX4 DOSES/DAY) IH, 1-2 INHALATIONS 1-4 TIMES A DAY, AS NEEDED
     Route: 055
  2. PARA-TABS [Concomitant]
     Active Substance: ACETAMINOPHEN
     Indication: PRODUCT USED FOR UNKNOWN INDICATION
     Dosage: 500-1000 MG AS NEEDED
     Route: 048
  3. ROGAINE [Suspect]
     Active Substance: MINOXIDIL
     Indication: ALOPECIA
     Dosage: USED FOR 3-4 DAYS, THEN STOPPED; DAILY DOSE: 6 PUMPS EQUAL TO 1 ML
     Route: 065
     Dates: start: 20160723, end: 20160727
  4. SYMBICORT [Concomitant]
     Active Substance: BUDESONIDE\FORMOTEROL FUMARATE DIHYDRATE
     Indication: ASTHMA
     Dosage: 1 DOSE X 2 AS NEEDED 2X2
     Route: 055
  5. PROVERA [Concomitant]
     Active Substance: MEDROXYPROGESTERONE ACETATE
     Indication: ASTHMA
     Dosage: SEPARATE INSTRUCTIONS: 1 TABLET A DAY ON DAYS 1-15 OF THE MONTH EVERY 3 MONTH PO
     Route: 048
  6. ROGAINE [Suspect]
     Active Substance: MINOXIDIL
     Route: 065
  7. ESTROGEL [Concomitant]
     Active Substance: ESTRADIOL
     Indication: MENOPAUSE
     Dosage: 1 DOSE X1 ONTO THE SKIN
     Route: 061
     Dates: end: 20160729
  8. OPAMOX [Concomitant]
     Active Substance: OXAZEPAM
     Indication: PRODUCT USED FOR UNKNOWN INDICATION
     Dosage: 7.5 MG (MAXIMUM 15 MG/DAY), PO, AS NEEDED
     Route: 048
  9. GLUCOSAMINE [Concomitant]
     Active Substance: GLUCOSAMINE
     Indication: OSTEOARTHRITIS
     Dosage: 1X3
     Route: 048

REACTIONS (1)
  - Myocardial infarction [Recovered/Resolved]

NARRATIVE: CASE EVENT DATE: 20160728
